FAERS Safety Report 8943279 (Version 2)
Quarter: 2013Q1

REPORT INFORMATION
  Report Type: Spontaneous
  Country: AU (occurrence: AU)
  Receive Date: 20121204
  Receipt Date: 20130217
  Transmission Date: 20140127
  Serious: Yes (Other)
  Sender: FDA-Public Use
  Company Number: AU-009507513-1212AUS000204

PATIENT
  Age: 53 Year
  Sex: Male

DRUGS (1)
  1. VICTRELIS 200 MG [Suspect]
     Dosage: 200 MG, UNK
     Route: 048

REACTIONS (2)
  - Suicide attempt [Unknown]
  - Depression [Unknown]
